FAERS Safety Report 6192830-3 (Version None)
Quarter: 2009Q2

REPORT INFORMATION
  Report Type: 
  Country: None (occurrence: None)
  Receive Date: 20090518
  Receipt Date: 20090507
  Transmission Date: 20091009
  Serious: Yes (Hospitalization)
  Sender: FDA-Public Use
  Company Number: US-AVENTIS-200914041US

PATIENT
  Sex: Male

DRUGS (5)
  1. LANTUS [Suspect]
     Indication: BLOOD GLUCOSE ABNORMAL
     Route: 058
     Dates: end: 20090505
  2. LANTUS [Suspect]
     Route: 058
     Dates: start: 20090506
  3. OPTICLIK (INSULIN INJECTION PEN) [Suspect]
     Indication: BLOOD GLUCOSE ABNORMAL
  4. NOVOLOG [Concomitant]
     Dosage: DOSE: PER SLIDING SCALE BEFORE MEALS
     Dates: start: 20081101
  5. ORAL ANTIDIABETICS [Concomitant]
     Dosage: DOSE: 1 TABLET
     Dates: start: 20081101

REACTIONS (2)
  - BLOOD GLUCOSE INCREASED [None]
  - PNEUMONIA [None]
